FAERS Safety Report 8882530 (Version 3)
Quarter: 2014Q2

REPORT INFORMATION
  Report Type: Spontaneous
  Country: US (occurrence: US)
  Receive Date: 20121103
  Receipt Date: 20140508
  Transmission Date: 20141212
  Serious: Yes (Other)
  Sender: FDA-Public Use
  Company Number: US-US-EMD SERONO, INC.-7170278

PATIENT
  Age: 45 Year
  Sex: Female
  Weight: 136 kg

DRUGS (1)
  1. REBIF [Suspect]
     Indication: MULTIPLE SCLEROSIS
     Dates: start: 200608, end: 201205

REACTIONS (2)
  - Intraductal proliferative breast lesion [Recovered/Resolved]
  - Oestrogen receptor positive breast cancer [Recovered/Resolved]
